FAERS Safety Report 14455800 (Version 1)
Quarter: 2018Q1

REPORT INFORMATION
  Report Type: Spontaneous
  Country: NL (occurrence: NL)
  Receive Date: 20180130
  Receipt Date: 20180130
  Transmission Date: 20180509
  Serious: Yes (Disabling, Other)
  Sender: FDA-Public Use
  Company Number: NL-ACCORD-062989

PATIENT

DRUGS (1)
  1. ANASTROZOLE. [Suspect]
     Active Substance: ANASTROZOLE
     Indication: PRODUCT USED FOR UNKNOWN INDICATION

REACTIONS (6)
  - Gait inability [Recovering/Resolving]
  - Foot deformity [Recovering/Resolving]
  - Burning sensation [Recovering/Resolving]
  - Product substitution issue [Unknown]
  - Trigger finger [Recovering/Resolving]
  - Pain [Recovering/Resolving]
